FAERS Safety Report 21340651 (Version 1)
Quarter: 2022Q3

REPORT INFORMATION
  Report Type: Spontaneous
  Country: FR (occurrence: FR)
  Receive Date: 20220916
  Receipt Date: 20220916
  Transmission Date: 20221027
  Serious: Yes (Life-Threatening)
  Sender: FDA-Public Use
  Company Number: None

PATIENT
  Age: 79 Year
  Sex: Female

DRUGS (6)
  1. PREDNISONE [Suspect]
     Active Substance: PREDNISONE
     Indication: Plasma cell myeloma
     Dosage: DURATION-305 DAYS
     Dates: start: 20151001, end: 20160801
  2. DEXAMETHASONE [Suspect]
     Active Substance: DEXAMETHASONE
     Indication: Plasma cell myeloma
     Dosage: DURATION-954 DAYS
     Dates: start: 20190911, end: 20220422
  3. REVLIMID [Suspect]
     Active Substance: LENALIDOMIDE
     Indication: Plasma cell myeloma
     Dosage: FORM STRENGTH: 5 MG, UNIT DOSE: 105 MG, FREQUENCY TIME- 1 MONTH, DURATION-903 DAYS
     Dates: start: 20190911, end: 20220302
  4. VELCADE [Suspect]
     Active Substance: BORTEZOMIB
     Indication: Plasma cell myeloma
     Dosage: DURATION 305 DAYS
     Dates: start: 20151001, end: 20160801
  5. MELPHALAN [Suspect]
     Active Substance: MELPHALAN
     Indication: Plasma cell myeloma
     Dosage: DURATION 305 DAYS
     Dates: start: 20151001, end: 20160801
  6. DARATUMUMAB [Suspect]
     Active Substance: DARATUMUMAB
     Indication: Plasma cell myeloma
     Dosage: UNIT DOSE: 1800 MG, FREQUENCY TIME- 1 MONTH, END DATE: NOT ASKED
     Dates: start: 20190911

REACTIONS (1)
  - Acute myeloid leukaemia [Not Recovered/Not Resolved]

NARRATIVE: CASE EVENT DATE: 20220301
